FAERS Safety Report 18307868 (Version 1)
Quarter: 2020Q3

REPORT INFORMATION
  Report Type: Spontaneous
  Country: ES (occurrence: ES)
  Receive Date: 20200924
  Receipt Date: 20200924
  Transmission Date: 20201103
  Serious: Yes (Other)
  Sender: FDA-Public Use
  Company Number: ES-ASTRAZENECA-2020SF19403

PATIENT
  Age: 82 Year
  Sex: Male

DRUGS (1)
  1. DAPAGLIFLOZIN. [Suspect]
     Active Substance: DAPAGLIFLOZIN
     Dosage: UNKNOWN
     Route: 048

REACTIONS (2)
  - Septic shock [Unknown]
  - Fournier^s gangrene [Unknown]

NARRATIVE: CASE EVENT DATE: 202007
